FAERS Safety Report 6263135-7 (Version None)
Quarter: 2009Q3

REPORT INFORMATION
  Report Type: 
  Country: None (occurrence: None)
  Receive Date: 20090708
  Receipt Date: 20090708
  Transmission Date: 20100115
  Serious: Yes (Other)
  Sender: FDA-Public Use
  Company Number: None

PATIENT
  Age: 64 Year
  Sex: Female
  Weight: 76.2043 kg

DRUGS (4)
  1. NITROFURANTOIN [Suspect]
     Indication: URINARY TRACT INFECTION
     Dosage: 100 MG 1/DAY 10 DAYS EVERY 12 HRS
     Dates: start: 20090520
  2. NITROFURANTOIN [Suspect]
     Indication: URINARY TRACT INFECTION
     Dosage: 100 MG 1/DAY 10 DAYS EVERY 12 HRS
     Dates: start: 20090521
  3. NITROFURANTOIN [Suspect]
     Indication: URINARY TRACT INFECTION
     Dosage: 100 MG 1/DAY 10 DAYS EVERY 12 HRS
     Dates: start: 20090522
  4. NITROFURANTOIN [Suspect]
     Indication: URINARY TRACT INFECTION
     Dosage: 100 MG 1/DAY 10 DAYS EVERY 12 HRS
     Dates: start: 20090523

REACTIONS (6)
  - ASTHENIA [None]
  - CHILLS [None]
  - DIARRHOEA [None]
  - MALAISE [None]
  - RASH [None]
  - VOMITING [None]
